FAERS Safety Report 4356246-4 (Version None)
Quarter: 2004Q2

REPORT INFORMATION
  Report Type: 
  Country: None (occurrence: None)
  Receive Date: 20040511
  Receipt Date: 20040427
  Transmission Date: 20050107
  Serious: Yes (Death, Hospitalization)
  Sender: FDA-Public Use
  Company Number: JP-SHR-04-024702

PATIENT
  Age: 54 Year
  Sex: Male
  Weight: 51 kg

DRUGS (2)
  1. FLUDARA [Suspect]
     Indication: STEM CELL TRANSPLANT
  2. IMMUNOSUPPRESSIVE AGENTS [Concomitant]

REACTIONS (5)
  - ACUTE MYELOID LEUKAEMIA [None]
  - CONDITION AGGRAVATED [None]
  - GRAFT VERSUS HOST DISEASE [None]
  - PNEUMONIA [None]
  - RESPIRATORY FAILURE [None]
